FAERS Safety Report 9639023 (Version 1)
Quarter: 2013Q4

REPORT INFORMATION
  Report Type: Spontaneous
  Country: US (occurrence: US)
  Receive Date: 20131022
  Receipt Date: 20131022
  Transmission Date: 20140711
  Serious: Yes (Other)
  Sender: FDA-Public Use
  Company Number: US-UCBSA-100335

PATIENT
  Age: 53 Year
  Sex: Female
  Weight: 74.8 kg

DRUGS (2)
  1. CIMZIA [Suspect]
     Indication: RHEUMATOID ARTHRITIS
     Dosage: STRENGTH 200 MG
     Route: 058
     Dates: start: 201111, end: 201308
  2. CIMZIA [Suspect]
     Indication: INFLAMMATION
     Dosage: STRENGTH 200 MG
     Route: 058
     Dates: start: 201111, end: 201308

REACTIONS (1)
  - Psoriasis [Unknown]
